FAERS Safety Report 24184240 (Version 1)
Quarter: 2024Q3

REPORT INFORMATION
  Report Type: Spontaneous
  Country: US (occurrence: US)
  Receive Date: 20240807
  Receipt Date: 20240807
  Transmission Date: 20241016
  Serious: No
  Sender: ROCHE
  Company Number: US-ROCHE-10000047858

PATIENT
  Age: 58 Year
  Sex: Female
  Weight: 40.37 kg

DRUGS (3)
  1. RITUXAN [Suspect]
     Active Substance: RITUXIMAB
     Indication: Rheumatoid arthritis
     Route: 042
     Dates: start: 20240426, end: 20240513
  2. MAGNESIUM [Concomitant]
     Active Substance: MAGNESIUM
     Dosage: CAPSULE COMES AS 400 MG. PATIENT TAKES 2 CAPSULES DAILY. TOTAL DOSAGE IS 800 MG.
     Route: 048
     Dates: start: 2015
  3. VITAMIN D3 [Concomitant]
     Active Substance: CHOLECALCIFEROL
     Dosage: PATIENT TAKES VITAMIN D3 THREE TIMES A WEEK.
     Route: 048
     Dates: start: 2021

REACTIONS (9)
  - Tremor [Recovered/Resolved]
  - Pyrexia [Recovered/Resolved]
  - Hypertension [Recovered/Resolved]
  - Skin exfoliation [Recovered/Resolved]
  - Dry skin [Recovered/Resolved]
  - Pruritus [Recovered/Resolved]
  - Pruritus [Recovered/Resolved]
  - Pruritus [Recovered/Resolved]
  - Pruritus [Not Recovered/Not Resolved]

NARRATIVE: CASE EVENT DATE: 20240501
